FAERS Safety Report 4938382-4 (Version None)
Quarter: 2006Q1

REPORT INFORMATION
  Report Type: 
  Country: None (occurrence: None)
  Receive Date: 20060302
  Receipt Date: 20060217
  Transmission Date: 20060701
  Serious: Yes (Other)
  Sender: FDA-Public Use
  Company Number: 2006US-01678

PATIENT
  Age: 14 Year
  Sex: Female

DRUGS (1)
  1. ENALAPRIL MALEATE [Suspect]
     Dosage: INTRA-UTERINE
     Route: 015

REACTIONS (4)
  - CYSTITIS [None]
  - DRUG EXPOSURE DURING PREGNANCY [None]
  - RENAL DISORDER [None]
  - RENAL FAILURE ACUTE [None]
